FAERS Safety Report 5964297-9 (Version None)
Quarter: 2008Q4

REPORT INFORMATION
  Report Type: 
  Country: None (occurrence: None)
  Receive Date: 20081124
  Receipt Date: 20081112
  Transmission Date: 20090506
  Serious: Yes (Other)
  Sender: FDA-Public Use
  Company Number: BR-PFIZER INC-2008095711

PATIENT
  Sex: Female

DRUGS (2)
  1. FRONTAL [Suspect]
     Route: 048
     Dates: start: 20081105
  2. METFORMIN HCL [Interacting]
     Indication: DIABETES MELLITUS

REACTIONS (7)
  - ANOREXIA [None]
  - DRUG INTERACTION [None]
  - FALL [None]
  - HYPOGLYCAEMIA [None]
  - PANIC DISORDER [None]
  - SYNCOPE [None]
  - TINNITUS [None]
